FAERS Safety Report 17622770 (Version 12)
Quarter: 2020Q3

REPORT INFORMATION
  Report Type: Report from Study
  Country: JP (occurrence: JP)
  Receive Date: 20200403
  Receipt Date: 20200622
  Transmission Date: 20201105
  Serious: Yes (Hospitalization)
  Sender: FDA-Public Use
  Company Number: JP-DSJP-DSJ-2020-110375

PATIENT

DRUGS (87)
  1. FERROUS SODIUM CITRATE [Concomitant]
     Active Substance: SODIUM FERROUS CITRATE
     Indication: ANAEMIA
     Dosage: 100 MG, QD
     Route: 048
     Dates: start: 20190313, end: 20190717
  2. METOCLOPRAMIDE HYDROCHLORIDE. [Concomitant]
     Active Substance: METOCLOPRAMIDE HYDROCHLORIDE
     Indication: ANAEMIA
     Dosage: 10 MG, AS NEEDED
     Route: 042
     Dates: start: 20190607, end: 20190609
  3. PLATELETS [Concomitant]
     Active Substance: HUMAN PLATELET, ALLOGENIC
     Indication: PLATELET COUNT DECREASED
     Dosage: 1 IU, AS NEEDED
     Route: 042
     Dates: start: 20190610, end: 20190614
  4. RED BLOOD CELLS [Concomitant]
     Active Substance: HUMAN RED BLOOD CELL
     Indication: ANAEMIA
     Dosage: 2 IU, AS NEEDED
     Route: 042
     Dates: start: 20190608, end: 20190611
  5. FENTANYL CITRATE. [Concomitant]
     Active Substance: FENTANYL CITRATE
     Indication: CYSTITIS HAEMORRHAGIC
     Dosage: 100 UG, SINGLE
     Route: 042
     Dates: start: 20190611, end: 20190611
  6. TRANEXAMIC ACID. [Concomitant]
     Active Substance: TRANEXAMIC ACID
     Dosage: 0.01 L, BID
     Route: 042
     Dates: start: 20200424, end: 20200425
  7. RED BLOOD CELLS [Concomitant]
     Active Substance: HUMAN RED BLOOD CELL
     Dosage: 2 IU, SINGLE
     Route: 042
     Dates: start: 20200518, end: 20200518
  8. SUGAMMADEX SODIUM [Concomitant]
     Active Substance: SUGAMMADEX SODIUM
     Indication: CYSTITIS HAEMORRHAGIC
     Dosage: 200 MG, SINGLE
     Route: 042
     Dates: start: 20190611, end: 20190611
  9. VEEN?F [Concomitant]
     Active Substance: CALCIUM CHLORIDE\MAGNESIUM CHLORIDE\POTASSIUM CHLORIDE\SODIUM ACETATE\SODIUM CHLORIDE
     Indication: CYSTITIS HAEMORRHAGIC
     Dosage: 0.5 L, SINGLE
     Route: 042
     Dates: start: 20190611, end: 20190611
  10. REMIFENTANIL HYDROCHLORIDE. [Concomitant]
     Active Substance: REMIFENTANIL HYDROCHLORIDE
     Indication: CYSTITIS HAEMORRHAGIC
     Dosage: 1.68 ML, SINGLE
     Route: 042
     Dates: start: 20190611, end: 20190611
  11. FILGRASTIM [Concomitant]
     Active Substance: FILGRASTIM
     Indication: NEUTROPHIL COUNT DECREASED
     Dosage: 75 UG, QD
     Route: 058
     Dates: start: 20190614, end: 20190619
  12. REBAMIPIDE [Concomitant]
     Active Substance: REBAMIPIDE
     Indication: GASTRITIS PROPHYLAXIS
     Dosage: 100 MG, AS NEEDED
     Route: 048
     Dates: start: 2016
  13. TRANEXAMIC ACID. [Concomitant]
     Active Substance: TRANEXAMIC ACID
     Dosage: 10 ML, BID
     Route: 042
     Dates: start: 20200328, end: 20200331
  14. ACETAMINOPHEN. [Concomitant]
     Active Substance: ACETAMINOPHEN
     Indication: CYSTITIS HAEMORRHAGIC
     Dosage: 600 MG, AS NEEDED
     Route: 048
     Dates: start: 20190610, end: 20190616
  15. INDIGOCARMINE DAIICHI [Concomitant]
     Indication: CYSTITIS HAEMORRHAGIC
     Dosage: 1 DF, SINGLE
     Route: 042
     Dates: start: 20190611, end: 20190611
  16. PHENYLEPHRINE HYDROCHLORIDE. [Concomitant]
     Active Substance: PHENYLEPHRINE HYDROCHLORIDE
     Indication: CYSTITIS HAEMORRHAGIC
     Dosage: 0.4 MG, SINGLE
     Route: 042
     Dates: start: 20190611, end: 20190611
  17. POVIDONE?IODINE W/SUCROSE [Concomitant]
     Indication: SKIN ULCER
     Dosage: PROPER QUANTITY, AS NEEDED
     Route: 062
     Dates: start: 20200312
  18. GLUCOSE [Concomitant]
     Active Substance: DEXTROSE
     Indication: ANAEMIA PROPHYLAXIS
     Dosage: 50 ML, AS NEEDED
     Route: 042
     Dates: start: 20200330, end: 20200402
  19. TRASTUZUMAB DERUXTECAN. [Suspect]
     Active Substance: TRASTUZUMAB DERUXTECAN
     Dosage: 4.4 MG/KG, ONCE EVERY 3 WK
     Route: 041
     Dates: start: 20191001, end: 20191001
  20. TRASTUZUMAB DERUXTECAN. [Suspect]
     Active Substance: TRASTUZUMAB DERUXTECAN
     Dosage: 4.4 MG/KG, ONCE EVERY 3 WK
     Route: 041
     Dates: start: 20191128, end: 20200220
  21. TRASTUZUMAB DERUXTECAN. [Suspect]
     Active Substance: TRASTUZUMAB DERUXTECAN
     Dosage: 3.2 MG/KG, ONCE EVERY 3 WK
     Route: 041
     Dates: start: 20200312, end: 20200423
  22. SODIUM HYALURONATE [Concomitant]
     Active Substance: HYALURONATE SODIUM
     Indication: DRY EYE
     Dosage: 1 DROP, 5?6 TIMES PER DAY
     Route: 031
     Dates: start: 20190401
  23. CARBAZOCHROME SODIUM SULFONATE [Concomitant]
     Active Substance: CARBAZOCHROME SODIUM SULFONATE
     Indication: CYSTITIS HAEMORRHAGIC
     Dosage: 50 MG, QD
     Route: 042
     Dates: start: 20190607, end: 20190613
  24. TRANEXAMIC ACID. [Concomitant]
     Active Substance: TRANEXAMIC ACID
     Dosage: 10 ML, QD
     Route: 042
     Dates: start: 20200327, end: 20200327
  25. LEVOFLOXACIN HEMIHYDRATE [Concomitant]
     Active Substance: LEVOFLOXACIN
     Indication: PYELONEPHRITIS
     Dosage: 500 MG, AS NEEDED
     Route: 048
     Dates: start: 20190607, end: 20190613
  26. CEFEPIME DIHYDROCHLORIDE [Concomitant]
     Active Substance: CEFEPIME HYDROCHLORIDE
     Indication: PYELONEPHRITIS
     Dosage: 1 G, QD
     Route: 042
     Dates: start: 20190608, end: 20190616
  27. ACETAMINOPHEN. [Concomitant]
     Active Substance: ACETAMINOPHEN
     Indication: CANCER PAIN
     Dosage: 600 MG, AS NEEDED
     Route: 048
     Dates: start: 20190622
  28. RED BLOOD CELLS [Concomitant]
     Active Substance: HUMAN RED BLOOD CELL
     Dosage: 2 IU, SINGLE
     Route: 042
     Dates: start: 20200513, end: 20200513
  29. ROCURONIUM BROMIDE. [Concomitant]
     Active Substance: ROCURONIUM BROMIDE
     Indication: CYSTITIS HAEMORRHAGIC
     Dosage: 30 MG, SINGLE
     Route: 042
     Dates: start: 20190611, end: 20190611
  30. CEFOTIAM HYDROCHLORIDE [Concomitant]
     Active Substance: CEFOTIAM HYDROCHLORIDE
     Indication: ANTIBIOTIC THERAPY
     Dosage: 5 G, QD
     Route: 042
     Dates: start: 20190621, end: 20190622
  31. CIPROFLOXACIN HYDROCHLORIDE. [Concomitant]
     Active Substance: CIPROFLOXACIN HYDROCHLORIDE
     Indication: CYSTITIS HAEMORRHAGIC
     Dosage: 200 MG, BID
     Route: 048
     Dates: start: 20200302
  32. TRASTUZUMAB DERUXTECAN. [Suspect]
     Active Substance: TRASTUZUMAB DERUXTECAN
     Dosage: 4.4 MG/KG, ONCE EVERY 3 WK
     Route: 041
     Dates: start: 20190718, end: 20190829
  33. TRASTUZUMAB DERUXTECAN. [Suspect]
     Active Substance: TRASTUZUMAB DERUXTECAN
     Dosage: 3.2 MG/KG, ONCE EVERY 3 WK
     Route: 041
     Dates: start: 20200526, end: 20200526
  34. FESOTERODINE FUMARATE. [Concomitant]
     Active Substance: FESOTERODINE FUMARATE
     Indication: HYPERTONIC BLADDER
     Dosage: 4 MG, QD
     Route: 048
     Dates: start: 20171111, end: 201905
  35. BORRAGINOL A                       /01370101/ [Concomitant]
     Indication: HAEMORRHOIDS
     Dosage: 1 DF, AS NEEDED
     Route: 054
     Dates: start: 20190411, end: 20190411
  36. ACETAMINOPHEN. [Concomitant]
     Active Substance: ACETAMINOPHEN
     Dosage: 1000 MG, QD
     Route: 042
     Dates: start: 20200327, end: 20200327
  37. SOLDEM 3A [Concomitant]
     Active Substance: CARBOHYDRATES\POTASSIUM CHLORIDE\SODIUM CHLORIDE\SODIUM LACTATE
     Indication: FLUID REPLACEMENT
     Dosage: 0.5 L, QD
     Route: 042
     Dates: start: 20200513, end: 20200514
  38. SENOSIDE [Concomitant]
     Indication: TRANSURETHRAL BLADDER RESECTION
     Dosage: 12 MG, AS NEEDED
     Route: 048
     Dates: start: 20190610, end: 20190610
  39. HYDROXYZINE HYDROCHLORIDE. [Concomitant]
     Active Substance: HYDROXYZINE HYDROCHLORIDE
     Indication: ANAEMIA
     Dosage: 25 MG, AS NEEDED
     Route: 042
     Dates: start: 20190607, end: 20190609
  40. BETAMETHASONE VALERATE. [Concomitant]
     Active Substance: BETAMETHASONE VALERATE
     Indication: CYSTITIS HAEMORRHAGIC
     Dosage: 1 DF, SINGLE
     Route: 026
     Dates: start: 20190605, end: 20190605
  41. BUPIVACAINE HYDROCHLORIDE. [Concomitant]
     Active Substance: BUPIVACAINE HYDROCHLORIDE
     Indication: HIP FRACTURE
     Dosage: 2.6 ML, SINGLE
     Route: 042
     Dates: start: 20190621, end: 20190621
  42. CARBAZOCHROME SODIUM SULFONATE [Concomitant]
     Active Substance: CARBAZOCHROME SODIUM SULFONATE
     Indication: HAEMORRHAGE PROPHYLAXIS
     Dosage: 30 MG, TID
     Route: 048
     Dates: start: 20200120
  43. CIPROFLOXACIN HYDROCHLORIDE. [Concomitant]
     Active Substance: CIPROFLOXACIN HYDROCHLORIDE
     Indication: HAEMORRHOIDAL HAEMORRHAGE
     Dosage: 200 MG, BID
     Route: 048
     Dates: start: 20200327, end: 20200401
  44. TRASTUZUMAB DERUXTECAN. [Suspect]
     Active Substance: TRASTUZUMAB DERUXTECAN
     Dosage: 4.4 MG/KG, ONCE EVERY 3 WK
     Route: 041
     Dates: start: 20191030, end: 20191030
  45. LOXOPROFEN SODIUM HYDRATE [Concomitant]
     Active Substance: LOXOPROFEN SODIUM DIHYDRATE
     Indication: CANCER PAIN
     Dosage: 60 MG, AS NEEDED
     Route: 048
     Dates: start: 2016
  46. V ROHTO [Concomitant]
     Indication: SUBCONJUNCTIVAL INJECTION PROCEDURE
     Dosage: 1 DROP, 5?6 TIMES PER DAY
     Route: 031
     Dates: start: 20190321, end: 20190401
  47. BETAMETHASONE VALERATE. [Concomitant]
     Active Substance: BETAMETHASONE VALERATE
     Indication: ECZEMA
     Dosage: PROPER QUANTITIY, AS NEEDED
     Route: 062
     Dates: start: 20190411, end: 20190606
  48. ENSURE [Concomitant]
     Active Substance: AMINO ACIDS\DEXTROSE\ELECTROLYTES NOS\SOYBEAN OIL\VITAMINS
     Indication: HYPOALBUMINAEMIA
     Dosage: 0.25 L, QD
     Route: 048
     Dates: start: 20190418, end: 201905
  49. ACETAMINOPHEN. [Concomitant]
     Active Substance: ACETAMINOPHEN
     Indication: CANCER PAIN
     Dosage: 1000 MG, QD
     Route: 042
     Dates: start: 20200229, end: 20200229
  50. NACL [Concomitant]
     Active Substance: SODIUM CHLORIDE
     Indication: CYSTITIS HAEMORRHAGIC
     Dosage: 1 L, QD
     Route: 042
     Dates: start: 20190607, end: 20190614
  51. SOLULACT [Concomitant]
     Indication: FLUID REPLACEMENT
     Dosage: 1 L, QD
     Route: 042
     Dates: start: 20200229, end: 20200301
  52. SOLULACT [Concomitant]
     Dosage: 1000 ML, QD
     Route: 042
     Dates: start: 20200327, end: 20200329
  53. SOLULACT [Concomitant]
     Dosage: 1 L, SINGLE
     Route: 042
     Dates: start: 20200424, end: 20200424
  54. CARBAZOCHROME SODIUM SULFONATE [Concomitant]
     Active Substance: CARBAZOCHROME SODIUM SULFONATE
     Dosage: 50 MG, BID
     Route: 042
     Dates: start: 20200328, end: 20200331
  55. SOLDEM 3A [Concomitant]
     Active Substance: CARBOHYDRATES\POTASSIUM CHLORIDE\SODIUM CHLORIDE\SODIUM LACTATE
     Indication: CYSTITIS HAEMORRHAGIC
     Dosage: 0.1 L, QD
     Route: 042
     Dates: start: 20190608, end: 20190614
  56. ALBUMIN [Concomitant]
     Active Substance: ALBUMIN HUMAN
     Indication: NEUTROPHIL COUNT DECREASED
     Dosage: 0.1 L, SINGLE
     Route: 042
     Dates: start: 20190610, end: 20190610
  57. RED BLOOD CELLS [Concomitant]
     Active Substance: HUMAN RED BLOOD CELL
     Indication: HAEMORRHOIDAL HAEMORRHAGE
     Dosage: 4 IU, SINGLE
     Route: 042
     Dates: start: 20200328, end: 20200328
  58. PENTAZOCINE [Concomitant]
     Active Substance: PENTAZOCINE
     Indication: CYSTITIS HAEMORRHAGIC
     Dosage: 15 MG, SINGLE
     Route: 042
     Dates: start: 20190605, end: 20190605
  59. VOLUVEN [Concomitant]
     Active Substance: HYDROXYETHYL STARCH 130/0.4
     Indication: SURGERY
     Dosage: 0.4 L, QD
     Route: 042
     Dates: start: 20190621, end: 201906
  60. EPHEDRINE HYDROCHLORIDE [Concomitant]
     Active Substance: EPHEDRINE HYDROCHLORIDE
     Indication: HIP FRACTURE
     Dosage: 2 MG, SINGLE
     Route: 042
     Dates: start: 20190621, end: 20190621
  61. VALSARTAN. [Concomitant]
     Active Substance: VALSARTAN
     Indication: HYPERTENSION
     Dosage: 80 MG, QD
     Route: 048
     Dates: start: 20191223
  62. XYLOCAINE [Concomitant]
     Active Substance: LIDOCAINE HYDROCHLORIDE
     Indication: CYSTITIS HAEMORRHAGIC
     Dosage: 0.03 L, SINGLE
     Route: 042
     Dates: start: 20200302, end: 20200302
  63. IOPAMIDOL [Concomitant]
     Active Substance: IOPAMIDOL
     Indication: SCAN WITH CONTRAST
     Dosage: 0.1 L, PER 6 WEEKS
     Route: 042
     Dates: start: 20190328
  64. MAGNESIUM OXIDE. [Concomitant]
     Active Substance: MAGNESIUM OXIDE
     Indication: CONSTIPATION
     Dosage: 330 MG, AS NEEDED
     Route: 048
     Dates: start: 2016
  65. FERROUS SODIUM CITRATE [Concomitant]
     Active Substance: SODIUM FERROUS CITRATE
     Dosage: 100 MG, QD
     Route: 048
     Dates: start: 20190622, end: 20190717
  66. WHITE PETROLATUM [Concomitant]
     Active Substance: PETROLATUM
     Indication: PROPHYLAXIS
     Dosage: PROPER QUANTITIY, QD
     Route: 062
     Dates: start: 20190312
  67. SOLULACT [Concomitant]
     Indication: CYSTITIS HAEMORRHAGIC
     Dosage: 1 L, AS NEEDED
     Route: 042
     Dates: start: 20190607, end: 20190611
  68. CARBAZOCHROME SODIUM SULFONATE [Concomitant]
     Active Substance: CARBAZOCHROME SODIUM SULFONATE
     Indication: HAEMORRHOIDAL HAEMORRHAGE
     Dosage: 50 MG, QD
     Route: 042
     Dates: start: 20200228, end: 20200301
  69. CARBAZOCHROME SODIUM SULFONATE [Concomitant]
     Active Substance: CARBAZOCHROME SODIUM SULFONATE
     Dosage: 50 MG, BID
     Route: 042
     Dates: start: 20200424, end: 20200425
  70. TRANEXAMIC ACID. [Concomitant]
     Active Substance: TRANEXAMIC ACID
     Dosage: 0.01 L, BID
     Route: 042
     Dates: start: 20200513, end: 20200513
  71. FUROSEMIDE. [Concomitant]
     Active Substance: FUROSEMIDE
     Indication: TRANSURETHRAL BLADDER RESECTION
     Dosage: 10 MG, SINGLE
     Route: 042
     Dates: start: 20190610, end: 20190610
  72. SOLYUGEN [Concomitant]
     Indication: FLUID REPLACEMENT
     Dosage: 2.5 L, QD
     Route: 042
     Dates: start: 20190621, end: 20190622
  73. TRANEXAMIC ACID. [Concomitant]
     Active Substance: TRANEXAMIC ACID
     Indication: HAEMORRHAGE PROPHYLAXIS
     Dosage: 250 MG, TID
     Route: 048
     Dates: start: 20200120
  74. FULID [Concomitant]
     Indication: FLUID REPLACEMENT
     Dosage: 1000 ML, QD
     Route: 042
     Dates: start: 20200330, end: 20200331
  75. SODIUM PICOSULFATE [Concomitant]
     Active Substance: SODIUM PICOSULFATE
     Indication: PRODUCT USED FOR UNKNOWN INDICATION
     Dosage: PROPER QUANTITY, AS NEEDED
     Route: 048
     Dates: start: 20200330, end: 20200330
  76. MOVIPREP [Concomitant]
     Active Substance: ASCORBIC ACID\POLYETHYLENE GLYCOL 3350\POTASSIUM CHLORIDE\SODIUM ASCORBATE\SODIUM CHLORIDE\SODIUM SULFATE
     Indication: PRODUCT USED FOR UNKNOWN INDICATION
     Dosage: PROPER QUANTITY, AS NEEDED
     Route: 048
     Dates: start: 20200330, end: 20200330
  77. TRASTUZUMAB DERUXTECAN. [Suspect]
     Active Substance: TRASTUZUMAB DERUXTECAN
     Indication: HER2 POSITIVE BREAST CANCER
     Dosage: 5.4 MG/KG, ONCE EVERY 3 WK
     Route: 041
     Dates: start: 20190404, end: 20190606
  78. CARBAZOCHROME SODIUM SULFONATE [Concomitant]
     Active Substance: CARBAZOCHROME SODIUM SULFONATE
     Dosage: 50 MG, QD
     Route: 042
     Dates: start: 20200327, end: 20200327
  79. CARBAZOCHROME SODIUM SULFONATE [Concomitant]
     Active Substance: CARBAZOCHROME SODIUM SULFONATE
     Dosage: 50 MG, SINGLE
     Route: 042
     Dates: start: 20200513, end: 20200513
  80. GLYCERIN                           /00200601/ [Concomitant]
     Active Substance: GLYCERIN
     Indication: TRANSURETHRAL BLADDER RESECTION
     Dosage: 0.06 L, SINGLE
     Route: 054
     Dates: start: 20190610, end: 20190610
  81. RED BLOOD CELLS [Concomitant]
     Active Substance: HUMAN RED BLOOD CELL
     Indication: ANAEMIA POSTOPERATIVE
     Dosage: 2 IU, SINGLE
     Route: 042
     Dates: start: 20190622, end: 20190622
  82. PHYSIO 140 [Concomitant]
     Active Substance: CALCIUM GLUCONATE\DEXTROSE\MAGNESIUM CHLORIDE\POTASSIUM CHLORIDE\SODIUM ACETATE\SODIUM CHLORIDE\TRISODIUM CITRATE DIHYDRATE
     Indication: CYSTITIS HAEMORRHAGIC
     Dosage: 0.5 L, SINGLE
     Route: 042
     Dates: start: 20190611, end: 20190611
  83. DIFLUPREDNATE [Concomitant]
     Active Substance: DIFLUPREDNATE
     Indication: SKIN ULCER
     Dosage: PROPER QUANTITY, AS NEEDED
     Route: 062
     Dates: start: 20200312
  84. METRONIDAZOLE. [Concomitant]
     Active Substance: METRONIDAZOLE
     Indication: PROPHYLAXIS
     Dosage: PROPER QUANTITIY, QD
     Route: 062
     Dates: start: 20190129, end: 201903
  85. ACETAMINOPHEN. [Concomitant]
     Active Substance: ACETAMINOPHEN
     Indication: CYSTITIS HAEMORRHAGIC
     Dosage: 1000 MG, AS NEEDED
     Route: 042
     Dates: start: 20190608, end: 20190611
  86. TRANEXAMIC ACID. [Concomitant]
     Active Substance: TRANEXAMIC ACID
     Indication: CYSTITIS HAEMORRHAGIC
     Dosage: 0.01 L, QD
     Route: 042
     Dates: start: 20190607, end: 20190613
  87. TRANEXAMIC ACID. [Concomitant]
     Active Substance: TRANEXAMIC ACID
     Indication: HAEMORRHOIDAL HAEMORRHAGE
     Dosage: 0.01 L, QD
     Route: 042
     Dates: start: 20200228, end: 20200301

REACTIONS (4)
  - Haemorrhoidal haemorrhage [Recovered/Resolved]
  - Haemorrhoidal haemorrhage [Recovered/Resolved]
  - Haemorrhoidal haemorrhage [Recovered/Resolved]
  - Haemorrhoidal haemorrhage [Recovered/Resolved]

NARRATIVE: CASE EVENT DATE: 20200327
